FAERS Safety Report 5828258-2 (Version None)
Quarter: 2008Q3

REPORT INFORMATION
  Report Type: 
  Country: None (occurrence: None)
  Receive Date: 20080731
  Receipt Date: 20080723
  Transmission Date: 20090109
  Serious: Yes (Other)
  Sender: FDA-Public Use
  Company Number: US-PURDUE-GBR_2008_0004264

PATIENT
  Age: 57 Year
  Sex: Male

DRUGS (1)
  1. MORPHINE SULFATE CR CAPSULE DAILY 120 MG [Suspect]
     Indication: NECK PAIN
     Dosage: 120 MG, TID
     Route: 065

REACTIONS (1)
  - SLEEP APNOEA SYNDROME [None]
